FAERS Safety Report 23949144 (Version 11)
Quarter: 2025Q2

REPORT INFORMATION
  Report Type: Spontaneous
  Country: US (occurrence: US)
  Receive Date: 20240607
  Receipt Date: 20250514
  Transmission Date: 20250717
  Serious: Yes (Other)
  Sender: ROCHE
  Company Number: US-ROCHE-3575625

PATIENT
  Age: 51 Year
  Sex: Female
  Weight: 89.81 kg

DRUGS (3)
  1. XOLAIR PFS [Suspect]
     Active Substance: OMALIZUMAB
     Indication: Idiopathic urticaria
     Dosage: STRENGTH:150MG/ML
     Route: 058
     Dates: start: 202110
  2. XOLAIR PFS [Suspect]
     Active Substance: OMALIZUMAB
  3. HAEGARDA [Concomitant]
     Active Substance: HUMAN C1-ESTERASE INHIBITOR

REACTIONS (5)
  - Laryngeal disorder [Unknown]
  - Ill-defined disorder [Unknown]
  - Swelling [Unknown]
  - Weight decreased [Unknown]
  - Pharyngeal disorder [Unknown]

NARRATIVE: CASE EVENT DATE: 20240510
